FAERS Safety Report 8851964 (Version 1)
Quarter: 2012Q4

REPORT INFORMATION
  Report Type: 
  Country: DE (occurrence: DE)
  Receive Date: 20121022
  Receipt Date: 20121022
  Transmission Date: 20130627
  Serious: Yes (Death)
  Sender: FDA-Public Use
  Company Number: DE-SANOFI-AVENTIS-2012SA076748

PATIENT
  Age: 83 Year
  Sex: Female
  Weight: 59 kg

DRUGS (20)
  1. CLOPIDOGREL BISULFATE [Suspect]
     Indication: STENT INSERTION NOS
     Route: 048
     Dates: start: 20120418, end: 20120510
  2. DUOPLAVIN [Suspect]
     Indication: STENT INSERTION NOS
     Route: 048
     Dates: end: 20120510
  3. OMEPRAZOLE [Concomitant]
     Indication: DRUG USE FOR UNKNOWN INDICATION
     Dosage: bei Bedarf
     Route: 048
  4. PANTOPRAZOLE [Concomitant]
     Indication: GASTRITIS PROPHYLAXIS
     Dosage: daily dose: 20 Mg millgram(s) every Days
     Route: 048
     Dates: start: 20120403, end: 20120430
  5. ACETYLSALICYLIC ACID [Concomitant]
     Indication: DRUG USE FOR UNKNOWN INDICATION
     Dosage: daily dose: 100 Mg millgram(s) every Days
     Route: 048
  6. PRASUGREL [Concomitant]
     Indication: CORONARY DISEASE
     Dosage: daily dose: 10 Mg millgram(s) every Days
     Route: 065
     Dates: start: 20120511, end: 20120513
  7. FERROUS GLYCINE SULFATE [Concomitant]
     Indication: ANAEMIA
     Dosage: 1-1-1
     Route: 048
     Dates: start: 20120329, end: 20120430
  8. DIGITOXIN [Concomitant]
     Indication: HEART RATE
     Dosage: daily dose: 0.07 Mg millgram(s) every Days
     Route: 048
     Dates: start: 20120426, end: 20120529
  9. HYDROCHLOROTHIAZIDE [Concomitant]
     Indication: CARDIAC FAILURE
     Dosage: 1-0-0
     Route: 048
     Dates: start: 20120402, end: 20120405
  10. HYDROCHLOROTHIAZIDE [Concomitant]
     Indication: CARDIAC FAILURE
     Dosage: 2-0-0
     Route: 048
     Dates: start: 20120406, end: 20120425
  11. TORASEMIDE [Concomitant]
     Indication: DRUG USE FOR UNKNOWN INDICATION
     Dosage: 1-0-1/2
     Route: 048
     Dates: end: 20120524
  12. METOPROLOL [Concomitant]
     Indication: DRUG USE FOR UNKNOWN INDICATION
     Dosage: daily dose: 100 Mg millgram(s) every Days
     Route: 048
     Dates: end: 20120525
  13. ENALAPRIL [Concomitant]
     Indication: CARDIAC FAILURE
     Dosage: daily dose: 10 Mg millgram(s) every Days
     Route: 048
     Dates: start: 20120326, end: 20120430
  14. SIMVASTATIN [Concomitant]
     Indication: DRUG USE FOR UNKNOWN INDICATION
     Dosage: daily dose: 40 Mg millgram(s) every Days
     Route: 048
     Dates: end: 20120430
  15. METHIZOL [Concomitant]
     Indication: DRUG USE FOR UNKNOWN INDICATION
     Dosage: 1/2-0-0
     Route: 048
     Dates: end: 20120326
  16. IBUPROFEN [Concomitant]
     Indication: PAIN NOS
     Dosage: daily dose: 1000 Mg millgram(s) every Days
     Route: 048
     Dates: start: 20120402, end: 20120416
  17. ALLOPURINOL [Concomitant]
     Indication: HYPERURICAEMIA
     Route: 048
     Dates: start: 20120416, end: 20120430
  18. COLCHYSAT [Concomitant]
     Indication: GOUT ATTACK
     Dosage: daily dose: 75 G gram(s) every Days
     Route: 065
     Dates: start: 20120409, end: 20120415
  19. TRAMADOL HYDROCHLORIDE [Concomitant]
     Indication: DRUG USE FOR UNKNOWN INDICATION
     Dosage: bei Bedarf
     Route: 048
  20. ZOPICLON [Concomitant]
     Indication: DISORDER SLEEP
     Dosage: daily dose: 10 Mg millgram(s) every Days
     Route: 048
     Dates: start: 20120423, end: 20120430

REACTIONS (2)
  - Drug-induced liver injury [Fatal]
  - Hyperbilirubinaemia [Fatal]
